FAERS Safety Report 9336295 (Version 1)
Quarter: 2013Q2

REPORT INFORMATION
  Report Type: Spontaneous
  Country: US (occurrence: US)
  Receive Date: 20130607
  Receipt Date: 20130607
  Transmission Date: 20140414
  Serious: Yes (Other)
  Sender: FDA-Public Use
  Company Number: US-ROCHE-1027727

PATIENT
  Age: 22 Year
  Sex: Male
  Weight: 74.91 kg

DRUGS (2)
  1. ACCUTANE [Suspect]
     Indication: ACNE
     Route: 065
     Dates: start: 19950920, end: 19960227
  2. ACCUTANE [Suspect]
     Indication: ACNE CYSTIC

REACTIONS (8)
  - Crohn^s disease [Unknown]
  - Inflammatory bowel disease [Unknown]
  - Anal fissure [Unknown]
  - Perirectal abscess [Unknown]
  - Anal fistula [Unknown]
  - Depression [Recovered/Resolved]
  - Chapped lips [Unknown]
  - Headache [Unknown]
